FAERS Safety Report 7110515-3 (Version None)
Quarter: 2010Q4

REPORT INFORMATION
  Report Type: 
  Country: None (occurrence: None)
  Receive Date: 20101118
  Receipt Date: 20101109
  Transmission Date: 20110411
  Serious: Yes (Hospitalization)
  Sender: FDA-Public Use
  Company Number: FR-ASTRAZENECA-2010SE53202

PATIENT
  Age: 18943 Day
  Sex: Female

DRUGS (9)
  1. NEXIUM [Suspect]
     Route: 048
     Dates: start: 20080101, end: 20101016
  2. REVLIMID [Suspect]
     Route: 048
     Dates: start: 20081015, end: 20101016
  3. NEORECORMON [Concomitant]
  4. EFFEXOR [Concomitant]
  5. SIMVASTATIN [Concomitant]
  6. ABUFENE [Concomitant]
  7. LEXOMIL [Concomitant]
  8. EFFRALGAN CODEINE [Concomitant]
  9. TRIATEC [Concomitant]

REACTIONS (1)
  - AUTOIMMUNE THROMBOCYTOPENIA [None]
